FAERS Safety Report 11991993 (Version 1)
Quarter: 2016Q1

REPORT INFORMATION
  Report Type: Spontaneous
  Country: US (occurrence: None)
  Receive Date: 20160202
  Receipt Date: 20160202
  Transmission Date: 20160526
  Serious: Yes (Other)
  Sender: FDA-Public Use
  Company Number: None

PATIENT
  Age: 18 Year
  Sex: Female
  Weight: 90 kg

DRUGS (5)
  1. ASPIRIN. [Concomitant]
     Active Substance: ASPIRIN
  2. ENALAPRIL [Concomitant]
     Active Substance: ENALAPRIL
  3. SYNTHROID [Concomitant]
     Active Substance: LEVOTHYROXINE SODIUM
  4. LANOXIN [Concomitant]
     Active Substance: DIGOXIN
  5. DIGOXIN 0.125 MG GENERIC FORM [Suspect]
     Active Substance: DIGOXIN
     Indication: ATRIOVENTRICULAR SEPTAL DEFECT
     Dosage: 0.125MG 1 PILL DAILY ORALLY
     Route: 048
     Dates: start: 201310, end: 20131028

REACTIONS (4)
  - Fatigue [None]
  - Cyanosis [None]
  - Product substitution issue [None]
  - Cardiac disorder [None]

NARRATIVE: CASE EVENT DATE: 20131025
